FAERS Safety Report 5902647-X (Version None)
Quarter: 2008Q3

REPORT INFORMATION
  Report Type: 
  Country: None (occurrence: None)
  Receive Date: 20080926
  Receipt Date: 20080917
  Transmission Date: 20090109
  Serious: Yes (Other)
  Sender: FDA-Public Use
  Company Number: CHPA2008GB14944

PATIENT
  Age: 53 Year
  Sex: Male

DRUGS (2)
  1. NICOTINELL GUM             (NICOTINE) CHEWABLE GUM [Suspect]
     Indication: SMOKING CESSATION THERAPY
     Dosage: 2 MG, 18 GUMS QD, BUCCAL; 4 MG, 14 GUMS QD, BUCCAL; 2 MG, 14 GUMS QD, BUCCAL
     Route: 002
     Dates: end: 20041206
  2. NICOTINELL GUM             (NICOTINE) CHEWABLE GUM [Suspect]
     Indication: SMOKING CESSATION THERAPY
     Dosage: 2 MG, 18 GUMS QD, BUCCAL; 4 MG, 14 GUMS QD, BUCCAL; 2 MG, 14 GUMS QD, BUCCAL
     Route: 002
     Dates: start: 20040101

REACTIONS (3)
  - DRUG DEPENDENCE [None]
  - INTENTIONAL DRUG MISUSE [None]
  - OVERDOSE [None]
